FAERS Safety Report 20235322 (Version 1)
Quarter: 2021Q4

REPORT INFORMATION
  Report Type: Report from Study
  Country: US (occurrence: US)
  Receive Date: 20211228
  Receipt Date: 20211228
  Transmission Date: 20220303
  Serious: Yes (Other)
  Sender: FDA-Public Use
  Company Number: US-ABBVIE-21K-163-4211916-00

PATIENT
  Age: 76 Year
  Sex: Male

DRUGS (1)
  1. LUPRON DEPOT [Suspect]
     Active Substance: LEUPROLIDE ACETATE
     Indication: Product used for unknown indication
     Route: 030

REACTIONS (16)
  - Blindness [Not Recovered/Not Resolved]
  - Chronic kidney disease [Unknown]
  - Essential hypertension [Unknown]
  - Hypertension [Unknown]
  - Pernicious anaemia [Unknown]
  - Gastrooesophageal reflux disease [Unknown]
  - Rhinitis allergic [Unknown]
  - Tendon disorder [Unknown]
  - Hyperlipidaemia [Unknown]
  - Type 2 diabetes mellitus [Unknown]
  - Restlessness [Unknown]
  - Eye disorder [Unknown]
  - Nausea [Not Recovered/Not Resolved]
  - Osteoarthritis [Unknown]
  - Osteoarthritis [Unknown]
  - Erectile dysfunction [Unknown]

NARRATIVE: CASE EVENT DATE: 20110819
